FAERS Safety Report 13550670 (Version 1)
Quarter: 2017Q2

REPORT INFORMATION
  Report Type: Spontaneous
  Country: AU (occurrence: AU)
  Receive Date: 20170516
  Receipt Date: 20170516
  Transmission Date: 20170830
  Serious: Yes (Death, Other)
  Sender: FDA-Public Use
  Company Number: AU-APOTEX-2017AP012147

PATIENT
  Age: 54 Year
  Sex: Female

DRUGS (3)
  1. ZOPICLONE APOTEX [Suspect]
     Active Substance: ZOPICLONE
     Indication: PRODUCT USED FOR UNKNOWN INDICATION
     Dosage: 75 MG, UNK
     Route: 048
  2. APO-LAMOTRIGINE [Suspect]
     Active Substance: LAMOTRIGINE
     Indication: PRODUCT USED FOR UNKNOWN INDICATION
     Dosage: 5 G, UNK
     Route: 048
  3. APO-QUETIAPINE [Suspect]
     Active Substance: QUETIAPINE
     Indication: PRODUCT USED FOR UNKNOWN INDICATION
     Dosage: 3 G, UNK
     Route: 048

REACTIONS (7)
  - Cardiac arrest [Unknown]
  - Electrocardiogram QRS complex prolonged [Unknown]
  - Distributive shock [Unknown]
  - Electrocardiogram QT prolonged [Unknown]
  - Toxicity to various agents [Fatal]
  - Overdose [Fatal]
  - Electrocardiogram ST segment depression [Unknown]
